FAERS Safety Report 9461713 (Version 1)
Quarter: 2013Q3

REPORT INFORMATION
  Report Type: Spontaneous
  Country: CA (occurrence: CA)
  Receive Date: 20130816
  Receipt Date: 20130816
  Transmission Date: 20140515
  Serious: Yes (Other)
  Sender: FDA-Public Use
  Company Number: CA-JNJFOC-20130807854

PATIENT
  Age: 6 Decade
  Sex: Female
  Weight: 58.97 kg

DRUGS (11)
  1. TOPAMAX [Suspect]
     Indication: PAIN MANAGEMENT
     Route: 048
     Dates: end: 201305
  2. TOPAMAX [Suspect]
     Indication: PAIN MANAGEMENT
     Route: 048
     Dates: start: 201302
  3. TOPAMAX [Suspect]
     Indication: PAIN MANAGEMENT
     Route: 048
     Dates: end: 2013
  4. TOPAMAX [Suspect]
     Indication: MIGRAINE
     Route: 048
     Dates: end: 2013
  5. TOPAMAX [Suspect]
     Indication: MIGRAINE
     Route: 048
     Dates: start: 201302
  6. TOPAMAX [Suspect]
     Indication: MIGRAINE
     Route: 048
     Dates: end: 201305
  7. NEXIUM [Concomitant]
     Indication: PRODUCT USED FOR UNKNOWN INDICATION
     Route: 065
  8. SENOKOT [Concomitant]
     Indication: PRODUCT USED FOR UNKNOWN INDICATION
     Route: 065
  9. DOCUSATE [Concomitant]
     Indication: PRODUCT USED FOR UNKNOWN INDICATION
     Route: 065
  10. GABAPENTIN [Concomitant]
     Indication: PRODUCT USED FOR UNKNOWN INDICATION
     Route: 065
  11. PAXIL [Concomitant]
     Indication: PRODUCT USED FOR UNKNOWN INDICATION
     Route: 065

REACTIONS (7)
  - Diverticulum [Unknown]
  - Urinary tract infection [Unknown]
  - Syncope [Unknown]
  - Agitation [Unknown]
  - Drug effect decreased [Unknown]
  - Pruritus generalised [Unknown]
  - Tension [Unknown]
